FAERS Safety Report 14316529 (Version 2)
Quarter: 2018Q1

REPORT INFORMATION
  Report Type: Spontaneous
  Country: NL (occurrence: NL)
  Receive Date: 20171222
  Receipt Date: 20180107
  Transmission Date: 20180509
  Serious: Yes (Hospitalization)
  Sender: FDA-Public Use
  Company Number: NL-009507513-1712NLD007094

PATIENT
  Age: 58 Year
  Sex: Female

DRUGS (2)
  1. COZAAR [Suspect]
     Active Substance: LOSARTAN POTASSIUM
     Indication: HYPERTENSION
     Dosage: UNK
     Route: 048
  2. ORGAMETRIL [Suspect]
     Active Substance: LYNESTRENOL
     Dosage: UNK
     Route: 048

REACTIONS (7)
  - Hypertension [Unknown]
  - Vomiting [Unknown]
  - Malaise [Unknown]
  - Dizziness [Unknown]
  - Drug ineffective [Unknown]
  - Hypertension [Unknown]
  - Overdose [Unknown]

NARRATIVE: CASE EVENT DATE: 201712
